FAERS Safety Report 6400997-4 (Version None)
Quarter: 2009Q4

REPORT INFORMATION
  Report Type: 
  Country: None (occurrence: None)
  Receive Date: 20091013
  Receipt Date: 20091013
  Transmission Date: 20100525
  Serious: Yes (Hospitalization)
  Sender: FDA-Public Use
  Company Number: None

PATIENT
  Sex: Male
  Weight: 80.4 kg

DRUGS (12)
  1. DACARBAZINE [Suspect]
     Indication: MALIGNANT MELANOMA
     Dosage: 1000MG/M2 Q 3 WK
     Dates: start: 20090910
  2. DASATINIB [Suspect]
     Indication: MALIGNANT MELANOMA
     Dosage: 100MG QD DAY 2-19
     Dates: start: 20090911, end: 20090915
  3. DASATINIB [Suspect]
     Indication: MALIGNANT MELANOMA
     Dosage: 100MG QD DAY 2-19
     Dates: start: 20090925, end: 20090927
  4. METAPROLOL [Concomitant]
  5. ZOCOR [Concomitant]
  6. FINASTERIDE [Concomitant]
  7. CALCIUM [Concomitant]
  8. GLUCOSAMINE [Concomitant]
  9. ASPIRIN [Concomitant]
  10. VITAMINS [Concomitant]
  11. DILAUDID [Concomitant]
  12. COMPAZINE MSCONTIN [Concomitant]

REACTIONS (9)
  - BLOOD CREATINE INCREASED [None]
  - BLOOD UREA INCREASED [None]
  - DYSPNOEA [None]
  - FLUID OVERLOAD [None]
  - GENERAL PHYSICAL HEALTH DETERIORATION [None]
  - HEPATIC ENZYME INCREASED [None]
  - MALIGNANT NEOPLASM PROGRESSION [None]
  - PLEURAL EFFUSION [None]
  - SOMNOLENCE [None]
